FAERS Safety Report 25707756 (Version 1)
Quarter: 2025Q3

REPORT INFORMATION
  Report Type: Spontaneous
  Country: EU (occurrence: EU)
  Receive Date: 20250820
  Receipt Date: 20250820
  Transmission Date: 20251021
  Serious: Yes (Other)
  Sender: MYLAN
  Company Number: None

PATIENT
  Age: 34 Year
  Sex: Female
  Weight: 59 kg

DRUGS (4)
  1. KETOPROFEN [Suspect]
     Active Substance: KETOPROFEN
     Indication: Haemorrhoids
     Dosage: 100 MILLIGRAM, BID, 100 MG X 2
     Dates: start: 20250621, end: 20250622
  2. KETOPROFEN [Suspect]
     Active Substance: KETOPROFEN
     Dosage: 100 MILLIGRAM, BID, 100 MG X 2
     Route: 048
     Dates: start: 20250621, end: 20250622
  3. KETOPROFEN [Suspect]
     Active Substance: KETOPROFEN
     Dosage: 100 MILLIGRAM, BID, 100 MG X 2
     Route: 048
     Dates: start: 20250621, end: 20250622
  4. KETOPROFEN [Suspect]
     Active Substance: KETOPROFEN
     Dosage: 100 MILLIGRAM, BID, 100 MG X 2
     Dates: start: 20250621, end: 20250622

REACTIONS (2)
  - Product prescribing error [Unknown]
  - Maternal exposure during pregnancy [Unknown]

NARRATIVE: CASE EVENT DATE: 20250621
